FAERS Safety Report 8423472-4 (Version None)
Quarter: 2012Q2

REPORT INFORMATION
  Report Type: 
  Country: None (occurrence: None)
  Receive Date: 20120608
  Receipt Date: 20120604
  Transmission Date: 20120825
  Serious: Yes (Death, Hospitalization)
  Sender: FDA-Public Use
  Company Number: FR-ELI_LILLY_AND_COMPANY-FR201204000257

PATIENT
  Age: 69 Year
  Sex: Male

DRUGS (12)
  1. TARCEVA [Concomitant]
     Dosage: UNK, UNKNOWN
  2. ALIMTA [Suspect]
     Indication: LUNG ADENOCARCINOMA
     Dosage: 500 MG/M2, OTHER
     Route: 042
     Dates: start: 20090427
  3. AMIKACIN [Concomitant]
     Dosage: 1 G, QD
     Dates: start: 20090416, end: 20090418
  4. PYOSTACINE [Concomitant]
     Dosage: UNK, UNKNOWN
     Dates: start: 20090427, end: 20090502
  5. MORPHINE SULFATE [Concomitant]
     Dosage: UNK, UNKNOWN
  6. VANCOMYCIN [Concomitant]
     Dosage: 500 MG, QOD
     Dates: start: 20090418, end: 20090427
  7. LOVENOX [Concomitant]
     Dosage: UNK, UNKNOWN
  8. TAZOBACTAM [Concomitant]
     Dosage: 500 MG, TID
     Dates: start: 20090416
  9. VITAMIN B-12 [Concomitant]
     Dosage: UNK, UNKNOWN
  10. FOLIC ACID [Concomitant]
     Dosage: UNK, UNKNOWN
  11. PROCORALAN [Concomitant]
     Dosage: UNK, UNKNOWN
  12. ACETAMINOPHEN [Concomitant]
     Dosage: UNK, UNKNOWN

REACTIONS (3)
  - CACHEXIA [None]
  - ECZEMA ASTEATOTIC [None]
  - DEATH [None]
